FAERS Safety Report 4329198-0 (Version None)
Quarter: 2004Q1

REPORT INFORMATION
  Report Type: 
  Country: None (occurrence: None)
  Receive Date: 20040329
  Receipt Date: 20040226
  Transmission Date: 20041129
  Serious: No
  Sender: FDA-Public Use
  Company Number: 03P-163-0245884-00

PATIENT
  Age: 48 Year
  Sex: Male
  Weight: 117.9352 kg

DRUGS (11)
  1. HUMIRA [Suspect]
     Indication: RHEUMATOID ARTHRITIS
     Dosage: 40 MG, 1 IN 2 WK, PER ORAL
     Route: 048
     Dates: start: 20031226
  2. TRAMADOL HCL [Concomitant]
  3. MECLIZINE [Concomitant]
  4. MOMETASONE FUROATE [Concomitant]
  5. DIPHENHYDRAMINE HCL [Concomitant]
  6. PANTOPRAZOLE [Concomitant]
  7. SYNTHROID [Concomitant]
  8. METHOTREXATE [Concomitant]
  9. METROPROLOL SUCCINATE [Concomitant]
  10. FOLIC ACID [Concomitant]
  11. HYDROCODONE [Concomitant]

REACTIONS (1)
  - BACK PAIN [None]
